FAERS Safety Report 6266399-9 (Version None)
Quarter: 2009Q3

REPORT INFORMATION
  Report Type: 
  Country: None (occurrence: None)
  Receive Date: 20090709
  Receipt Date: 20090629
  Transmission Date: 20100115
  Serious: Yes (Hospitalization)
  Sender: FDA-Public Use
  Company Number: DSA_33939_2009

PATIENT
  Age: 45 Year
  Sex: Female

DRUGS (1)
  1. ATIVAN [Suspect]
     Indication: DRUG USE FOR UNKNOWN INDICATION
     Dosage: DF

REACTIONS (4)
  - ACCIDENTAL OVERDOSE [None]
  - DEPRESSION [None]
  - FIBROMYALGIA [None]
  - HYPERSOMNIA [None]
